FAERS Safety Report 11592675 (Version 5)
Quarter: 2016Q1

REPORT INFORMATION
  Report Type: Spontaneous
  Country: US (occurrence: US)
  Receive Date: 20151005
  Receipt Date: 20160331
  Transmission Date: 20160525
  Serious: Yes (Hospitalization, Other)
  Sender: FDA-Public Use
  Company Number: US-ASTRAZENECA-2013SE25975

PATIENT
  Age: 15894 Day
  Sex: Male
  Weight: 137.4 kg

DRUGS (28)
  1. IRON [Concomitant]
     Active Substance: IRON
     Route: 048
  2. TRICOR [Concomitant]
     Active Substance: FENOFIBRATE
     Dates: start: 20090103
  3. TRILIPIX [Concomitant]
     Active Substance: FENOFIBRIC ACID
     Dates: start: 20090930
  4. EFFEXOR [Concomitant]
     Active Substance: VENLAFAXINE HYDROCHLORIDE
  5. DALMANE [Concomitant]
     Active Substance: FLURAZEPAM HYDROCHLORIDE
     Route: 048
  6. ZOFRAN [Concomitant]
     Active Substance: ONDANSETRON HYDROCHLORIDE
  7. LORTAB [Concomitant]
     Active Substance: ACETAMINOPHEN\HYDROCODONE BITARTRATE
     Route: 048
  8. LOTREL [Concomitant]
     Active Substance: AMLODIPINE BESYLATE\BENAZEPRIL HYDROCHLORIDE
     Dosage: 10-40 MG
     Dates: start: 20080922
  9. HYZAAR [Concomitant]
     Active Substance: HYDROCHLOROTHIAZIDE\LOSARTAN POTASSIUM
     Dates: start: 20081210
  10. IBUPROFEN. [Concomitant]
     Active Substance: IBUPROFEN
     Dates: start: 20090628
  11. LOPRESSOR [Concomitant]
     Active Substance: METOPROLOL TARTRATE
  12. CRESTOR [Suspect]
     Active Substance: ROSUVASTATIN CALCIUM
     Indication: BLOOD CHOLESTEROL INCREASED
     Route: 048
     Dates: start: 20090103
  13. CRESTOR [Suspect]
     Active Substance: ROSUVASTATIN CALCIUM
     Indication: BLOOD CHOLESTEROL INCREASED
     Route: 048
     Dates: start: 20101027
  14. TEMAZEPAM. [Concomitant]
     Active Substance: TEMAZEPAM
     Dates: start: 20090513
  15. LANTUS [Concomitant]
     Active Substance: INSULIN GLARGINE
  16. HYDRALAZINE [Concomitant]
     Active Substance: HYDRALAZINE HYDROCHLORIDE
     Route: 048
  17. AMBIEN [Concomitant]
     Active Substance: ZOLPIDEM TARTRATE
     Route: 048
  18. CRESTOR [Suspect]
     Active Substance: ROSUVASTATIN CALCIUM
     Indication: BLOOD CHOLESTEROL INCREASED
     Route: 048
     Dates: start: 200001
  19. CARBAMAZEPIN [Concomitant]
     Active Substance: CARBAMAZEPINE
  20. OXYCOD [Concomitant]
     Dates: start: 20090716
  21. MORPHINE [Concomitant]
     Active Substance: MORPHINE
  22. ASPIRIN. [Concomitant]
     Active Substance: ASPIRIN
  23. NABUMETONE. [Concomitant]
     Active Substance: NABUMETONE
     Dates: start: 20080922
  24. LEXAPRO [Concomitant]
     Active Substance: ESCITALOPRAM OXALATE
     Dates: start: 20080929
  25. SOMA [Concomitant]
     Active Substance: CARISOPRODOL
     Route: 048
  26. NEURONTIN [Concomitant]
     Active Substance: GABAPENTIN
     Route: 048
  27. ENALAPRIL [Concomitant]
     Active Substance: ENALAPRIL
  28. COZAAR [Concomitant]
     Active Substance: LOSARTAN POTASSIUM
     Route: 048

REACTIONS (13)
  - Syncope [Unknown]
  - Heart rate irregular [Unknown]
  - Type 2 diabetes mellitus [Not Recovered/Not Resolved]
  - Angina pectoris [Unknown]
  - Blood triglycerides increased [Not Recovered/Not Resolved]
  - Ischaemic stroke [Unknown]
  - Cardiomyopathy [Unknown]
  - Cardiac failure congestive [Unknown]
  - Coronary artery disease [Unknown]
  - Rhabdomyolysis [Unknown]
  - Myocardial infarction [Unknown]
  - Cardiovascular disorder [Unknown]
  - Hypertension [Unknown]

NARRATIVE: CASE EVENT DATE: 20080220
